FAERS Safety Report 9109851 (Version 1)
Quarter: 2013Q1

REPORT INFORMATION
  Report Type: Report from Study
  Country: CA (occurrence: CA)
  Receive Date: 20130222
  Receipt Date: 20130222
  Transmission Date: 20140127
  Serious: Yes (Hospitalization)
  Sender: FDA-Public Use
  Company Number: CA-JNJFOC-20130207953

PATIENT
  Age: 43 Year
  Sex: Female
  Weight: 77 kg

DRUGS (7)
  1. REMICADE [Suspect]
     Indication: COLITIS ULCERATIVE
     Dosage: 26 INFUSIONS RECEIVED
     Route: 042
  2. LASIX [Concomitant]
     Route: 065
  3. RYTHMOL [Concomitant]
     Route: 065
  4. COUMADIN [Concomitant]
     Dosage: 3-4
     Route: 065
  5. SPIRONOLACTONE [Concomitant]
     Route: 065
  6. VITAMIN D W/ CALCIUM [Concomitant]
     Route: 065
  7. CIPROLEX [Concomitant]
     Route: 065

REACTIONS (4)
  - Appendicitis [Recovered/Resolved]
  - Abdominal distension [Recovered/Resolved]
  - Local swelling [Recovered/Resolved]
  - Erythema [Recovered/Resolved]
